FAERS Safety Report 15012806 (Version 3)
Quarter: 2018Q3

REPORT INFORMATION
  Report Type: Spontaneous
  Country: JP (occurrence: JP)
  Receive Date: 20180614
  Receipt Date: 20180828
  Transmission Date: 20181010
  Serious: Yes (Hospitalization, Other)
  Sender: FDA-Public Use
  Company Number: JP-JNJFOC-20180406752

PATIENT
  Age: 85 Year
  Sex: Male
  Weight: 49 kg

DRUGS (15)
  1. STERONEMA [Concomitant]
     Active Substance: BETAMETHASONE SODIUM PHOSPHATE
     Indication: COLITIS ULCERATIVE
     Route: 054
  2. BETAMETHASONE. [Concomitant]
     Active Substance: BETAMETHASONE
     Indication: COLITIS ULCERATIVE
     Route: 054
  3. PENTASA [Concomitant]
     Active Substance: MESALAMINE
     Indication: COLITIS ULCERATIVE
     Route: 054
  4. REMICADE [Suspect]
     Active Substance: INFLIXIMAB
     Indication: COLITIS ULCERATIVE
     Route: 042
     Dates: start: 20180410
  5. SIMPONI [Suspect]
     Active Substance: GOLIMUMAB
     Indication: COLITIS ULCERATIVE
     Route: 058
     Dates: start: 20180306, end: 20180322
  6. PREDONINE [Concomitant]
     Active Substance: PREDNISOLONE
     Route: 048
     Dates: start: 20180328, end: 20180406
  7. LOXONIN [Concomitant]
     Active Substance: LOXOPROFEN SODIUM
     Route: 065
  8. REMICADE [Suspect]
     Active Substance: INFLIXIMAB
     Indication: COLITIS ULCERATIVE
     Route: 042
     Dates: start: 20180327
  9. BROTIZOLAM [Concomitant]
     Active Substance: BROTIZOLAM
     Indication: COLITIS ULCERATIVE
     Route: 048
  10. SIMPONI [Suspect]
     Active Substance: GOLIMUMAB
     Indication: COLITIS ULCERATIVE
     Route: 058
     Dates: start: 20180122
  11. CLARITIN [Concomitant]
     Active Substance: LORATADINE
     Indication: PROPHYLAXIS
     Route: 065
     Dates: start: 20180327
  12. ASACOL [Concomitant]
     Active Substance: MESALAMINE
     Indication: COLITIS ULCERATIVE
     Route: 048
  13. REMICADE [Suspect]
     Active Substance: INFLIXIMAB
     Indication: COLITIS ULCERATIVE
     Route: 042
     Dates: start: 20180106, end: 20180122
  14. SIMPONI [Suspect]
     Active Substance: GOLIMUMAB
     Indication: COLITIS ULCERATIVE
     Route: 058
     Dates: start: 20180206
  15. PREDONINE [Concomitant]
     Active Substance: PREDNISOLONE
     Route: 048
     Dates: start: 20180407

REACTIONS (3)
  - Drug ineffective [Unknown]
  - Colitis ulcerative [Unknown]
  - Infusion related reaction [Recovering/Resolving]

NARRATIVE: CASE EVENT DATE: 2018
